FAERS Safety Report 10193093 (Version 2)
Quarter: 2014Q2

REPORT INFORMATION
  Report Type: Spontaneous
  Country: US (occurrence: US)
  Receive Date: 20140524
  Receipt Date: 20140524
  Transmission Date: 20141212
  Serious: No
  Sender: FDA-Public Use
  Company Number: US-SANOFI-AVENTIS-2012SA067215

PATIENT
  Sex: Female

DRUGS (2)
  1. SOLOSTAR [Suspect]
  2. LANTUS SOLOSTAR [Suspect]
     Dosage: TAKEN FROM: 3 YEARS.
     Route: 065

REACTIONS (3)
  - Injection site injury [Unknown]
  - Accidental exposure to product [Unknown]
  - Pruritus [Recovering/Resolving]
